FAERS Safety Report 6652811-X (Version None)
Quarter: 2010Q1

REPORT INFORMATION
  Report Type: 
  Country: None (occurrence: None)
  Receive Date: 20100326
  Receipt Date: 20100312
  Transmission Date: 20100710
  Serious: Yes (Hospitalization, Congenital Anomaly, Other)
  Sender: FDA-Public Use
  Company Number: US-ELI_LILLY_AND_COMPANY-US201001001374

PATIENT
  Sex: Female

DRUGS (13)
  1. FORTEO [Suspect]
     Indication: OSTEOPOROSIS
     Dosage: 20 UG, DAILY (1/D)
     Dates: start: 20060101
  2. FORTEO [Suspect]
     Dosage: 20 UG, DAILY (1/D)
     Dates: start: 20090101, end: 20090101
  3. FORTEO [Suspect]
     Dosage: 20 UG, DAILY (1/D)
     Dates: start: 20090101
  4. LANTUS [Concomitant]
     Dosage: 10 U, DAILY (1/D)
  5. BYSTOLIC [Concomitant]
  6. PRENATAL VITAMINS /01549301/ [Concomitant]
  7. LOVAZA [Concomitant]
     Dosage: UNK, 4/D
  8. PREMARIN [Concomitant]
     Dosage: 0.625 MG, DAILY (1/D)
  9. NEXIUM [Concomitant]
     Dosage: 40 MG, DAILY (1/D)
  10. POTASSIUM PHOSPHATES [Concomitant]
     Dosage: 500 MG, 3/D
  11. LISINOPRIL [Concomitant]
     Dosage: 5 MG, DAILY (1/D)
  12. TIZANIDINE HCL [Concomitant]
     Dosage: UNK, EACH EVENING
  13. ASPIRIN [Concomitant]
     Dosage: 325 MG, UNK

REACTIONS (15)
  - ARTHRALGIA [None]
  - BACK PAIN [None]
  - BONE PAIN [None]
  - CARDIAC FAILURE CONGESTIVE [None]
  - COMA [None]
  - COMPRESSION FRACTURE [None]
  - CORONARY ARTERY BYPASS [None]
  - FALL [None]
  - HYPERSENSITIVITY [None]
  - HYPERTENSION [None]
  - INFECTION [None]
  - LIGAMENT INJURY [None]
  - PAIN [None]
  - PAIN IN EXTREMITY [None]
  - RENAL FAILURE [None]
